FAERS Safety Report 9259608 (Version 3)
Quarter: 2014Q1

REPORT INFORMATION
  Report Type: Spontaneous
  Country: US (occurrence: US)
  Receive Date: 20130429
  Receipt Date: 20140115
  Transmission Date: 20141002
  Serious: Yes (Hospitalization, Disabling, Other)
  Sender: FDA-Public Use
  Company Number: US-ASTRAZENECA-2013SE27578

PATIENT
  Age: 52 Year
  Sex: Female
  Weight: 64.4 kg

DRUGS (17)
  1. NEXIUM [Suspect]
     Indication: GASTROOESOPHAGEAL REFLUX DISEASE
     Route: 048
  2. NEXIUM [Suspect]
     Indication: GASTROOESOPHAGEAL REFLUX DISEASE
     Route: 048
     Dates: start: 20050303
  3. NEXIUM [Suspect]
     Indication: GASTROOESOPHAGEAL REFLUX DISEASE
     Dosage: 20MG AND 40MG
     Route: 048
     Dates: start: 20050303, end: 2011
  4. PRILOSEC OTC [Suspect]
     Indication: GASTROOESOPHAGEAL REFLUX DISEASE
     Route: 048
  5. PRILOSEC [Suspect]
     Route: 048
     Dates: start: 2011
  6. ZANTAC [Concomitant]
     Indication: GASTROOESOPHAGEAL REFLUX DISEASE
     Dates: start: 2002, end: 2007
  7. ZANTAC [Concomitant]
     Indication: GASTROOESOPHAGEAL REFLUX DISEASE
  8. LOTENSIN [Concomitant]
     Dates: start: 20020625
  9. BENZONATATE [Concomitant]
     Dates: start: 20021028
  10. PREVACID [Concomitant]
     Indication: GASTROOESOPHAGEAL REFLUX DISEASE
     Dates: start: 20030410, end: 200305
  11. LISINOPRIL [Concomitant]
     Dates: start: 20030410
  12. ALBUTEROL [Concomitant]
     Dates: start: 20030606
  13. DICYCLOMINE [Concomitant]
     Dates: start: 20030709
  14. PREDNISONE [Concomitant]
     Dates: start: 20060217
  15. CELEBREX [Concomitant]
     Dates: start: 20060717
  16. LIPITOR [Concomitant]
     Dates: start: 20061016
  17. PROTONIX [Concomitant]
     Indication: GASTROOESOPHAGEAL REFLUX DISEASE
     Dates: start: 20050621

REACTIONS (13)
  - Cervical vertebral fracture [Unknown]
  - Fall [Unknown]
  - Neck injury [Unknown]
  - Joint injury [Unknown]
  - Pelvic fracture [Unknown]
  - Spinal osteoarthritis [Unknown]
  - Intervertebral disc degeneration [Unknown]
  - Osteoporosis [Unknown]
  - Bone disorder [Unknown]
  - Limb injury [Unknown]
  - Mass [Unknown]
  - Dizziness [Unknown]
  - Headache [Unknown]
